FAERS Safety Report 7833608-1 (Version None)
Quarter: 2011Q4

REPORT INFORMATION
  Report Type: 
  Country: None (occurrence: None)
  Receive Date: 20111024
  Receipt Date: 20111014
  Transmission Date: 20120403
  Serious: Yes (Other)
  Sender: FDA-Public Use
  Company Number: IT-BRISTOL-MYERS SQUIBB COMPANY-16166696

PATIENT
  Age: 61 Year
  Sex: Male

DRUGS (2)
  1. IRBESARTAN [Suspect]
     Indication: HYPERTENSION
     Dosage: INTERRUPT ON MAY2011 RESTARTED ON JUN2011. DURATION:3MONTH
     Route: 048
     Dates: start: 20110301
  2. METOPROLOL TARTRATE [Concomitant]
     Indication: HYPERTENSION
     Dosage: 0.5POSOLOGICAL UNIT
     Route: 048
     Dates: start: 20110601, end: 20111001

REACTIONS (5)
  - HYPERTENSION [None]
  - HEAD DISCOMFORT [None]
  - DEPRESSED LEVEL OF CONSCIOUSNESS [None]
  - ADENOMA BENIGN [None]
  - CONFUSIONAL STATE [None]
